FAERS Safety Report 16068833 (Version 2)
Quarter: 2019Q2

REPORT INFORMATION
  Report Type: Report from Study
  Country: US (occurrence: US)
  Receive Date: 20190313
  Receipt Date: 20190628
  Transmission Date: 20190711
  Serious: Yes (Hospitalization)
  Sender: FDA-Public Use
  Company Number: US-SHIRE-US201718179

PATIENT
  Age: 68 Year
  Sex: Male
  Weight: 90.3 kg

DRUGS (5)
  1. VITAMIN D2 [Concomitant]
     Active Substance: ERGOCALCIFEROL
     Indication: VITAMIN D DEFICIENCY
  2. VITAMIN B12 [Concomitant]
     Active Substance: CYANOCOBALAMIN
     Indication: VITAMIN B12 DEFICIENCY
  3. MAGONATE [Concomitant]
     Active Substance: MAGNESIUM CARBONATE
     Indication: MAGNESIUM DEFICIENCY
  4. TEDUGLUTIDE [Suspect]
     Active Substance: TEDUGLUTIDE
     Indication: PRODUCT USED FOR UNKNOWN INDICATION
     Dosage: 0.05 MG/KG, 1X/DAY:QD
     Route: 065
     Dates: start: 20131028
  5. COPPER SULFATE [Concomitant]
     Active Substance: CUPRIC SULFATE ANHYDROUS
     Indication: NUTRITIONAL SUPPLEMENTATION

REACTIONS (1)
  - Arrhythmia [Recovered/Resolved]

NARRATIVE: CASE EVENT DATE: 20170804
